FAERS Safety Report 12009306 (Version 2)
Quarter: 2019Q2

REPORT INFORMATION
  Report Type: Report from Study
  Country: DE (occurrence: DE)
  Receive Date: 20160205
  Receipt Date: 20190406
  Transmission Date: 20190711
  Serious: Yes (Death, Other)
  Sender: FDA-Public Use
  Company Number: DE-ACCORD-037545

PATIENT

DRUGS (5)
  1. ETOPOSIDE. [Suspect]
     Active Substance: ETOPOSIDE
     Indication: PLASMA CELL MYELOMA
     Dosage: ON DAYS 4-7 EVERY CYCLE
     Route: 065
     Dates: start: 200701, end: 2012
  2. CARMUSTINE. [Suspect]
     Active Substance: CARMUSTINE
     Indication: PLASMA CELL MYELOMA
     Dosage: ON DAY 2 OF EVERY CYCLE
     Route: 065
     Dates: start: 200701, end: 2012
  3. MELPHALAN. [Suspect]
     Active Substance: MELPHALAN
     Indication: PLASMA CELL MYELOMA
     Dosage: ON DAY 3 OF EVERY CYCLE
     Route: 065
     Dates: start: 200701, end: 2012
  4. DEXAMETHASONE. [Suspect]
     Active Substance: DEXAMETHASONE
     Indication: PLASMA CELL MYELOMA
     Dosage: DOSING 3X8 (MG ABS.), DAYS 1-10 OF EVERY CYCLE
     Route: 065
     Dates: start: 200701, end: 2012
  5. CYTARABINE. [Suspect]
     Active Substance: CYTARABINE
     Indication: PLASMA CELL MYELOMA
     Dosage: ON DAYS 4-7
     Route: 065
     Dates: start: 200701, end: 2012

REACTIONS (6)
  - Neutropenia [Unknown]
  - Sepsis [Fatal]
  - Multiple organ dysfunction syndrome [Fatal]
  - Thrombocytopenia [Unknown]
  - Intestinal perforation [Fatal]
  - Toxicity to various agents [Fatal]
